FAERS Safety Report 6103962-X (Version None)
Quarter: 2009Q1

REPORT INFORMATION
  Report Type: 
  Country: None (occurrence: None)
  Receive Date: 20090305
  Receipt Date: 20090302
  Transmission Date: 20090719
  Serious: Yes (Other)
  Sender: FDA-Public Use
  Company Number: B0562435A

PATIENT
  Age: 69 Year
  Sex: Female

DRUGS (4)
  1. SERETIDE [Suspect]
     Indication: ASTHMA
     Dosage: 2PUFF TWICE PER DAY
     Route: 055
  2. VENTOLIN [Suspect]
     Indication: ASTHMA
     Dosage: 100MCG AS REQUIRED
     Route: 055
  3. BENDROFLUMETHIAZIDE [Suspect]
     Indication: BLOOD PRESSURE
     Dosage: 2.5MG PER DAY
     Route: 048
  4. OMEPRAZOLE [Suspect]
     Dosage: 20MG PER DAY
     Route: 048

REACTIONS (3)
  - BIOPSY LYMPH GLAND [None]
  - BREAST CANCER [None]
  - BREAST LUMP REMOVAL [None]
